FAERS Safety Report 5639772-7 (Version None)
Quarter: 2008Q1

REPORT INFORMATION
  Report Type: 
  Country: None (occurrence: None)
  Receive Date: 20080226
  Receipt Date: 20080226
  Transmission Date: 20080703
  Serious: Yes (Hospitalization)
  Sender: FDA-Public Use
  Company Number: None

PATIENT
  Age: 85 Year
  Sex: Female
  Weight: 81.8 kg

DRUGS (2)
  1. ATENOLOL [Suspect]
     Dosage: 100MG 1X PO
     Route: 048
     Dates: start: 20071120, end: 20071120
  2. LOVENOX [Suspect]
     Dosage: 30MG 1X SQ
     Route: 058

REACTIONS (2)
  - MEDICATION ERROR [None]
  - WRONG DRUG ADMINISTERED [None]
